FAERS Safety Report 11773069 (Version 1)
Quarter: 2015Q4

REPORT INFORMATION
  Report Type: Spontaneous
  Country: US (occurrence: None)
  Receive Date: 20151123
  Receipt Date: 20151123
  Transmission Date: 20160304
  Serious: No
  Sender: FDA-Public Use
  Company Number: None

PATIENT
  Age: 54 Year
  Sex: Female

DRUGS (1)
  1. ENBREL [Suspect]
     Active Substance: ETANERCEPT
     Indication: RHEUMATOID ARTHRITIS
     Route: 058
     Dates: start: 20150708

REACTIONS (4)
  - Injection site erythema [None]
  - Injection site bruising [None]
  - Rheumatoid arthritis [None]
  - Visual acuity reduced [None]

NARRATIVE: CASE EVENT DATE: 20151115
